FAERS Safety Report 9003824 (Version 1)
Quarter: 2013Q1

REPORT INFORMATION
  Report Type: Spontaneous
  Country: US (occurrence: US)
  Receive Date: 20130108
  Receipt Date: 20130108
  Transmission Date: 20140127
  Serious: No
  Sender: FDA-Public Use
  Company Number: US-GLAXOSMITHKLINE-A0987925A

PATIENT
  Age: 63 Year
  Sex: Female

DRUGS (8)
  1. LOVAZA [Suspect]
     Indication: PROPHYLAXIS
     Route: 048
     Dates: start: 200808
  2. PROCARDIA [Concomitant]
  3. DIOVAN [Concomitant]
  4. PLAVIX [Concomitant]
  5. SINGULAIR [Concomitant]
  6. QVAR [Concomitant]
  7. CRESTOR [Concomitant]
  8. ASPIRIN [Concomitant]

REACTIONS (1)
  - Rash [Recovering/Resolving]
